FAERS Safety Report 18332167 (Version 1)
Quarter: 2020Q4

REPORT INFORMATION
  Report Type: Report from Study
  Country: None (occurrence: US)
  Receive Date: 20201001
  Receipt Date: 20201001
  Transmission Date: 20210113
  Serious: Yes (Hospitalization)
  Sender: FDA-Public Use
  Company Number: US-ABBVIE-20K-163-3585059-00

PATIENT
  Sex: Female

DRUGS (2)
  1. RINVOQ [Suspect]
     Active Substance: UPADACITINIB
     Indication: ANALGESIC INTERVENTION SUPPORTIVE THERAPY
     Route: 048
  2. CORTISONE ACETATE. [Concomitant]
     Active Substance: CORTISONE ACETATE
     Indication: PRODUCT USED FOR UNKNOWN INDICATION

REACTIONS (4)
  - Pain [Unknown]
  - Drug ineffective [Unknown]
  - Arthralgia [Recovering/Resolving]
  - Musculoskeletal stiffness [Not Recovered/Not Resolved]
